FAERS Safety Report 12143694 (Version 1)
Quarter: 2016Q1

REPORT INFORMATION
  Report Type: Spontaneous
  Country: US (occurrence: US)
  Receive Date: 20160304
  Receipt Date: 20160304
  Transmission Date: 20160526
  Serious: No
  Sender: FDA-Public Use
  Company Number: US-JNJFOC-20160211798

PATIENT
  Age: 43 Year
  Sex: Male
  Weight: 86.18 kg

DRUGS (2)
  1. MENS ROGAINE EXTRA STRENGTH [Suspect]
     Active Substance: MINOXIDIL
     Route: 061
  2. MENS ROGAINE EXTRA STRENGTH [Suspect]
     Active Substance: MINOXIDIL
     Indication: ALOPECIA
     Dosage: COTTOM BALL SIZE
     Route: 061
     Dates: end: 20160209

REACTIONS (3)
  - Inappropriate schedule of drug administration [Recovering/Resolving]
  - Dizziness [Recovering/Resolving]
  - Dizziness postural [Recovering/Resolving]
